FAERS Safety Report 4285121-9 (Version None)
Quarter: 2004Q1

REPORT INFORMATION
  Report Type: 
  Country: None (occurrence: None)
  Receive Date: 20040204
  Receipt Date: 20040123
  Transmission Date: 20041129
  Serious: Yes (Hospitalization)
  Sender: FDA-Public Use
  Company Number: JP-GLAXOSMITHKLINE-B0320956A

PATIENT
  Age: 50 Year
  Sex: Male

DRUGS (6)
  1. LAMIVUDINE [Suspect]
     Indication: HEPATITIS B
     Dosage: 100MG PER DAY
     Route: 048
     Dates: start: 20010110
  2. URSODESOXYCHOLIC ACID [Concomitant]
  3. INTERFERON BETA [Concomitant]
  4. DICLOFENAC SODIUM [Concomitant]
  5. MISOPROSTOL [Concomitant]
  6. DICLOFENAC SODIUM [Concomitant]

REACTIONS (4)
  - ALANINE AMINOTRANSFERASE INCREASED [None]
  - HEPATITIS [None]
  - HEPATITIS B [None]
  - PYREXIA [None]
